FAERS Safety Report 9913240 (Version 1)
Quarter: 2014Q1

REPORT INFORMATION
  Report Type: Spontaneous
  Country: US (occurrence: None)
  Receive Date: 20140214
  Receipt Date: 20140214
  Transmission Date: 20141002
  Serious: Yes (Death)
  Sender: FDA-Public Use
  Company Number: AUR-APL-2014-01244

PATIENT
  Age: 87 Year
  Sex: Female

DRUGS (8)
  1. AMLODIPINE (AMLODIPINE) [Suspect]
     Indication: PRODUCT USED FOR UNKNOWN INDICATION
     Route: 048
  2. ATENOLOL (ATENOLOL) [Suspect]
     Indication: PRODUCT USED FOR UNKNOWN INDICATION
  3. SERTRALINE (SERTRALINE) [Suspect]
     Indication: PRODUCT USED FOR UNKNOWN INDICATION
  4. ALPRAZOLAM (ALPRAZOLAM) [Suspect]
     Indication: PRODUCT USED FOR UNKNOWN INDICATION
  5. TRAMADOL (TRAMADOL) [Suspect]
     Indication: PRODUCT USED FOR UNKNOWN INDICATION
  6. HYDROCHLOROTHIAZIDE VALSARTAN [Suspect]
     Indication: PRODUCT USED FOR UNKNOWN INDICATION
  7. TRYPTOPHAN [Suspect]
     Indication: PRODUCT USED FOR UNKNOWN INDICATION
  8. DONEPEZIL (DONEPEZIL) [Suspect]
     Indication: PRODUCT USED FOR UNKNOWN INDICATION

REACTIONS (7)
  - Medication error [None]
  - Incorrect dose administered [None]
  - Incorrect route of drug administration [None]
  - Wrong patient received medication [None]
  - Wrong drug administered [None]
  - Drug interaction [None]
  - Toxicity to various agents [None]
